FAERS Safety Report 11841503 (Version 1)
Quarter: 2015Q4

REPORT INFORMATION
  Report Type: Other
  Country: GB (occurrence: GB)
  Receive Date: 20151216
  Receipt Date: 20151216
  Transmission Date: 20160305
  Serious: Yes (Life-Threatening, Disabling, Other)
  Sender: FDA-Public Use
  Company Number: GB-MYLANLABS-2015M1043633

PATIENT

DRUGS (13)
  1. BACLOFEN. [Concomitant]
     Active Substance: BACLOFEN
     Dosage: 20 MG, TID
  2. BECONASE AQ [Concomitant]
     Active Substance: BECLOMETHASONE DIPROPIONATE MONOHYDRATE
     Dosage: UNK
  3. KEPPRA [Concomitant]
     Active Substance: LEVETIRACETAM
     Dosage: 2000 MG, UNK (500 MG IN THE MORNING AND 1500MG AT NIGHT)
  4. MACROGOL [Concomitant]
     Active Substance: POLYETHYLENE GLYCOLS
     Dosage: 1 DF, QD (AT NIGHT)
  5. FOLIC ACID. [Concomitant]
     Active Substance: FOLIC ACID
     Dosage: 5 MG, UNK
  6. TRAMADOL. [Suspect]
     Active Substance: TRAMADOL
     Indication: ANALGESIC THERAPY
     Dosage: 50 MG, QID
     Route: 048
     Dates: start: 2013, end: 20151124
  7. GABAPENTIN. [Concomitant]
     Active Substance: GABAPENTIN
     Dosage: 600 MG, TID
  8. OMEPRAZOLE. [Concomitant]
     Active Substance: OMEPRAZOLE
     Dosage: 40 MG, QD
  9. ACIDEX                             /00550802/ [Concomitant]
     Active Substance: RANITIDINE HYDROCHLORIDE
     Dosage: 2 DF, UNK
  10. FOSTAIR [Concomitant]
     Active Substance: BECLOMETHASONE\FORMOTEROL
     Dosage: 2 DF, BID (IN MORNING AND NIGHT)
     Route: 055
  11. SENNA                              /00142201/ [Concomitant]
     Active Substance: SENNA LEAF
     Dosage: 7.5 MG, BID
  12. HIBISCRUB                          /00133001/ [Concomitant]
     Dosage: UNK
  13. VENTOLIN [Concomitant]
     Active Substance: ALBUTEROL SULFATE
     Dosage: 2 DF, BID (IN THE MORNING AND NIGHT)
     Route: 055

REACTIONS (12)
  - Mental disorder [Recovering/Resolving]
  - Aggression [Recovering/Resolving]
  - Inhibitory drug interaction [Recovering/Resolving]
  - Abnormal sensation in eye [Unknown]
  - Feeling abnormal [Recovering/Resolving]
  - Hypersomnia [Recovering/Resolving]
  - Visual impairment [Recovering/Resolving]
  - Slow speech [Recovering/Resolving]
  - Hypoglycaemia [Recovering/Resolving]
  - Dizziness [Recovering/Resolving]
  - Nervousness [Unknown]
  - Appetite disorder [Unknown]

NARRATIVE: CASE EVENT DATE: 2014
